FAERS Safety Report 9711200 (Version 2)
Quarter: 2014Q2

REPORT INFORMATION
  Report Type: Spontaneous
  Country: US (occurrence: US)
  Receive Date: 20131126
  Receipt Date: 20140510
  Transmission Date: 20141212
  Serious: No
  Sender: FDA-Public Use
  Company Number: US-BRISTOL-MYERS SQUIBB COMPANY-19203033

PATIENT
  Age: 47 Year
  Sex: Female
  Weight: 133.78 kg

DRUGS (5)
  1. BYETTA [Suspect]
     Indication: TYPE 2 DIABETES MELLITUS
  2. GLIMEPIRIDE [Suspect]
  3. DICLOFENAC [Concomitant]
  4. MORPHINE [Concomitant]
     Indication: BACK PAIN
  5. METFORMIN [Concomitant]

REACTIONS (5)
  - Blood glucose decreased [Unknown]
  - Tremor [Unknown]
  - Injection site erythema [Unknown]
  - Injection site bruising [Unknown]
  - Weight decreased [Unknown]
